FAERS Safety Report 4445148-0 (Version None)
Quarter: 2004Q3

REPORT INFORMATION
  Report Type: 
  Country: None (occurrence: None)
  Receive Date: 20040907
  Receipt Date: 20040824
  Transmission Date: 20050211
  Serious: Yes (Hospitalization)
  Sender: FDA-Public Use
  Company Number: K200401305

PATIENT
  Age: 38 Year
  Sex: Male
  Weight: 104.8 kg

DRUGS (15)
  1. SEPTRA IV INFUSION (TRIMETHOPRIM, SULFAMETHOXAZOLE) INFUSION, 6 AMPULE [Suspect]
     Indication: PNEUMOCYSTIS CARINII PNEUMONIA
     Dosage: 6 AMPULES, TID, INTRAVENOUS
     Route: 042
     Dates: start: 20040507, end: 20040519
  2. AUGMENTIN (AMOXICILLIN  TRIHYDRATE, CLAVULANATE POTASSIUM) SOLUTION, 1 [Suspect]
     Indication: PNEUMOCYSTIS CARINII PNEUMONIA
     Dosage: 1.2 G, TID, INTRAVENOUS
     Route: 042
     Dates: start: 20040507, end: 20040519
  3. FLUCONAZOLE (FLUCONAZOLE) INFUSION, 400 MG [Suspect]
     Indication: ORAL CANDIDIASIS
     Dosage: 400 MG, QD, INTRAVENOUS
     Route: 042
     Dates: start: 20040507, end: 20040521
  4. SODIUM CHLORIDE 0.9% [Concomitant]
  5. SOLU DACORTIN H (PREDNISOLONE SODIUM SUCCINATE) [Concomitant]
  6. PANTOZOL (PANTOPRZOLE SODIUM) [Concomitant]
  7. WELLVONE (ATOVAQUONE) [Concomitant]
  8. VANCOMYCIN [Concomitant]
  9. LAMIVUDINE (LAMIVUDINE) [Concomitant]
  10. VIREAD [Concomitant]
  11. KALETRA [Concomitant]
  12. ANTRA MUPS (OMEPRAZOLE MAGNESIUM) [Concomitant]
  13. TRENTAL ^ALBERT-ROUSSEL^ (PENTOXIFYLLINE) [Concomitant]
  14. ALNA (TAMSULOSIN HYDROCHLORIDE) [Concomitant]
  15. HEPARIN [Concomitant]

REACTIONS (7)
  - CATHETER SEPSIS [None]
  - CEREBRAL ISCHAEMIA [None]
  - HEMIPARESIS [None]
  - HEPATOCELLULAR DAMAGE [None]
  - HEPATOTOXICITY [None]
  - INJURY [None]
  - PLATELET COUNT DECREASED [None]
